FAERS Safety Report 18958492 (Version 1)
Quarter: 2021Q1

REPORT INFORMATION
  Report Type: Spontaneous
  Country: DE (occurrence: DE)
  Receive Date: 20210302
  Receipt Date: 20210302
  Transmission Date: 20210420
  Serious: Yes (Hospitalization, Other)
  Sender: FDA-Public Use
  Company Number: DE-VIIV HEALTHCARE LIMITED-DE2021039364

PATIENT
  Age: 5 Year
  Sex: Female
  Weight: 13 kg

DRUGS (8)
  1. VITAMIN D [Suspect]
     Active Substance: VITAMIN D NOS
     Indication: PRODUCT USED FOR UNKNOWN INDICATION
     Dosage: 1000 IU, QD (DAILY DOSE: 1000 IU INTERNATIONAL UNIT(S) EVERY DAYS)
     Route: 065
     Dates: end: 20190723
  2. RETROVIR [Concomitant]
     Active Substance: ZIDOVUDINE
     Indication: HIV INFECTION
     Dosage: UNK (120MG ? 0 ? 20MG)
     Route: 048
     Dates: start: 20190724
  3. ISENTRESS [Suspect]
     Active Substance: RALTEGRAVIR POTASSIUM
     Indication: HIV INFECTION
     Dosage: 160 MG, QD (DAILY DOSE: 160 MG MILLGRAM(S) EVERY DAYS 2 SEPARATED DOSES)
     Route: 048
     Dates: end: 20190723
  4. VIRAMUNE [Suspect]
     Active Substance: NEVIRAPINE
     Indication: HIV INFECTION
     Dosage: DAILY DOSE: 180 MG MILLGRAM(S) EVERY DAYS 2 SEPARATED DOSES
     Route: 048
     Dates: start: 2019, end: 20190723
  5. RETROVIR [Suspect]
     Active Substance: ZIDOVUDINE
     Indication: HIV INFECTION
     Dosage: 220 MG, QD(DAILY DOSE: 220 MG MILLGRAM(S) EVERY DAYS 2 SEPARATED DOSES)
     Route: 048
     Dates: end: 20190723
  6. KALETRA [Concomitant]
     Active Substance: LOPINAVIR\RITONAVIR
     Indication: HIV INFECTION
     Dosage: 3.4 ML, QD (DAILY DOSE: 3.4 ML MILLILITRE(S) EVERY DAYS 2 SEPARATED DOSES)
     Route: 048
     Dates: start: 20190724
  7. EPIVIR [Suspect]
     Active Substance: LAMIVUDINE
     Indication: HIV INFECTION
     Dosage: 130 MG, QD (DAILY DOSE: 130 MG MILLGRAM(S) EVERY DAYS 2 SEPARATED DOSES)
     Route: 048
  8. VIREAD [Concomitant]
     Active Substance: TENOFOVIR DISOPROXIL FUMARATE
     Indication: HIV INFECTION
     Dosage: 82.5 MG, QD (DAILY DOSE: 82.5 MG MILLGRAM(S) EVERY DAYS)
     Route: 048
     Dates: start: 20190725

REACTIONS (3)
  - Product administration error [Recovering/Resolving]
  - Blood HIV RNA increased [Recovering/Resolving]
  - Treatment noncompliance [Recovering/Resolving]
